FAERS Safety Report 10248977 (Version 1)
Quarter: 2014Q2

REPORT INFORMATION
  Report Type: Spontaneous
  Country: US (occurrence: None)
  Receive Date: 20140619
  Receipt Date: 20140619
  Transmission Date: 20141212
  Serious: Yes (Life-Threatening, Hospitalization, Disabling)
  Sender: FDA-Public Use
  Company Number: None

PATIENT
  Age: 35 Year
  Sex: Female
  Weight: 70.31 kg

DRUGS (3)
  1. CYMBALTA [Suspect]
     Indication: DEPRESSION
     Dosage: 40 MG, ONCE DAILY, TAKEN BY MOUTH
     Route: 048
     Dates: start: 20140104, end: 20140512
  2. CYMBALTA [Suspect]
     Indication: MYALGIA
     Dosage: 40 MG, ONCE DAILY, TAKEN BY MOUTH
     Route: 048
     Dates: start: 20140104, end: 20140512
  3. LEXAPRO [Suspect]
     Dosage: 10, ONCE DAILY, TAKEN BY MOUTH
     Route: 048
     Dates: start: 20131204, end: 20140606

REACTIONS (10)
  - Pruritus [None]
  - Contusion [None]
  - Chromaturia [None]
  - Dyspepsia [None]
  - Nausea [None]
  - Jaundice [None]
  - Back pain [None]
  - Abdominal distension [None]
  - Abdominal discomfort [None]
  - Autoimmune hepatitis [None]
